FAERS Safety Report 8305454-6 (Version None)
Quarter: 2012Q2

REPORT INFORMATION
  Report Type: 
  Country: None (occurrence: None)
  Receive Date: 20120423
  Receipt Date: 20120419
  Transmission Date: 20120825
  Serious: Yes (Death, Hospitalization)
  Sender: FDA-Public Use
  Company Number: US-GLAXOSMITHKLINE-A0880817A

PATIENT
  Age: 78 Year
  Sex: Male
  Weight: 125 kg

DRUGS (8)
  1. GLYBURIDE [Concomitant]
  2. AVANDIA [Suspect]
     Indication: DIABETES MELLITUS
     Dosage: 4MG TWICE PER DAY
     Route: 048
     Dates: start: 20030429, end: 20050927
  3. VERAPAMIL [Concomitant]
  4. LOTENSIN [Concomitant]
  5. ALBUTEROL [Concomitant]
  6. NEURONTIN [Concomitant]
  7. PROTONIX [Concomitant]
  8. LIPITOR [Concomitant]

REACTIONS (2)
  - MYOCARDIAL INFARCTION [None]
  - CARDIO-RESPIRATORY ARREST [None]
